FAERS Safety Report 8553756-0 (Version None)
Quarter: 2012Q3

REPORT INFORMATION
  Report Type: 
  Country: None (occurrence: None)
  Receive Date: 20120731
  Receipt Date: 20120723
  Transmission Date: 20120928
  Serious: Yes (Hospitalization)
  Sender: FDA-Public Use
  Company Number: US-GLAXOSMITHKLINE-A0987576A

PATIENT
  Age: 63 Year
  Sex: Female
  Weight: 56.4 kg

DRUGS (4)
  1. ACIDOPHILUS [Suspect]
     Route: 048
     Dates: start: 20120502, end: 20120706
  2. NO CONCURRENT MEDICATION [Concomitant]
  3. MEPRON [Suspect]
     Indication: PARASITE BLOOD TEST POSITIVE
     Dosage: 1TSP TWICE PER DAY
     Route: 048
     Dates: start: 20120502, end: 20120706
  4. AZITHROMYCIN [Suspect]
     Indication: PARASITE BLOOD TEST POSITIVE
     Dosage: 1.25TSP TWICE PER DAY
     Route: 048
     Dates: start: 20120502, end: 20120706

REACTIONS (5)
  - PERICARDIAL EFFUSION [None]
  - NECK PAIN [None]
  - CHEST PAIN [None]
  - PAIN IN EXTREMITY [None]
  - MYALGIA [None]
